FAERS Safety Report 5156218-6 (Version None)
Quarter: 2006Q4

REPORT INFORMATION
  Report Type: 
  Country: None (occurrence: None)
  Receive Date: 20061122
  Receipt Date: 20061114
  Transmission Date: 20070319
  Serious: Yes (Other)
  Sender: FDA-Public Use
  Company Number: US-KINGPHARMUSA00001-K200601456

PATIENT
  Age: 73 Year
  Sex: Male
  Weight: 75 kg

DRUGS (3)
  1. ALTACE [Suspect]
     Indication: HYPERTENSION
     Dosage: 2.5 MG, QD
     Route: 048
     Dates: start: 20060925, end: 20060927
  2. BENDROFLUMETHIAZIDE [Concomitant]
     Indication: HYPERTENSION
     Dosage: 2.5 MG, QD
     Route: 048
     Dates: start: 20060516
  3. FEXOFENADINE [Concomitant]
     Indication: RHINITIS ALLERGIC
     Dosage: 120 MG, QD
     Route: 048
     Dates: start: 20000607

REACTIONS (3)
  - HYPOAESTHESIA [None]
  - MUSCULAR WEAKNESS [None]
  - RADIAL NERVE PALSY [None]
